FAERS Safety Report 4335761-3 (Version None)
Quarter: 2004Q2

REPORT INFORMATION
  Report Type: 
  Country: None (occurrence: None)
  Receive Date: 20040409
  Receipt Date: 20040331
  Transmission Date: 20050107
  Serious: Yes (Hospitalization)
  Sender: FDA-Public Use
  Company Number: FR-BRISTOL-MYERS SQUIBB COMPANY-12547030

PATIENT
  Age: 48 Year
  Sex: Male

DRUGS (7)
  1. ZERIT [Suspect]
     Indication: HIV INFECTION
     Route: 048
     Dates: start: 19961015, end: 19981015
  2. INVIRASE [Suspect]
     Indication: HIV INFECTION
     Route: 048
     Dates: start: 19980215, end: 19981015
  3. VIRACEPT [Suspect]
     Indication: HIV INFECTION
     Route: 048
  4. VIRAMUNE [Suspect]
     Indication: HIV INFECTION
     Route: 048
  5. CRIXIVAN [Concomitant]
     Indication: HIV INFECTION
  6. EPIVIR [Concomitant]
  7. MAXEPA [Concomitant]
     Dates: start: 20031001

REACTIONS (2)
  - DIABETES MELLITUS [None]
  - HYPERTRIGLYCERIDAEMIA [None]
